FAERS Safety Report 15245747 (Version 2)
Quarter: 2018Q3

REPORT INFORMATION
  Report Type: Spontaneous
  Country: IN (occurrence: IN)
  Receive Date: 20180806
  Receipt Date: 20180806
  Transmission Date: 20181010
  Serious: Yes (Other)
  Sender: FDA-Public Use
  Company Number: PHHY2018IN055665

PATIENT
  Age: 3 Month
  Sex: Female

DRUGS (3)
  1. PREDNISOLONE. [Suspect]
     Active Substance: PREDNISOLONE
     Indication: PHACES SYNDROME
     Dosage: 3.3 MG/KG, UNK
     Route: 048
  2. TIMOLOL. [Suspect]
     Active Substance: TIMOLOL
     Indication: HAEMANGIOMA
     Dosage: UNK UNK, BID (1 DROP PER CM2 (4 DROPS PER LESION))
     Route: 061
  3. TOBRAMYCIN. [Concomitant]
     Active Substance: TOBRAMYCIN
     Indication: PHACES SYNDROME
     Dosage: UNK
     Route: 061

REACTIONS (2)
  - Product use in unapproved indication [Unknown]
  - Hyperkalaemia [Recovered/Resolved]
